FAERS Safety Report 4726936-X (Version None)
Quarter: 2005Q3

REPORT INFORMATION
  Report Type: 
  Country: None (occurrence: None)
  Receive Date: 20050726
  Receipt Date: 20050714
  Transmission Date: 20060218
  Serious: Yes (Other)
  Sender: FDA-Public Use
  Company Number: US-2005-005719

PATIENT
  Age: 38 Year
  Sex: Female
  Weight: 61.2 kg

DRUGS (1)
  1. MIRENA [Suspect]
     Indication: CONTRACEPTION
     Dosage: 20 UG/DAY, CONT, INTRA-UTERINE
     Route: 015
     Dates: start: 20041222

REACTIONS (17)
  - ARTHRALGIA [None]
  - AUTOIMMUNE DISORDER [None]
  - CONGENITAL MUSCULOSKELETAL ANOMALY [None]
  - MENORRHAGIA [None]
  - METRORRHAGIA [None]
  - MORPHOEA [None]
  - MUSCLE DISORDER [None]
  - NASOPHARYNGITIS [None]
  - OEDEMA PERIPHERAL [None]
  - PAPILLOMA VIRAL INFECTION [None]
  - PYREXIA [None]
  - RASH [None]
  - RASH MACULAR [None]
  - STREPTOCOCCAL INFECTION [None]
  - VENOUS OCCLUSION [None]
  - VERTIGO [None]
  - VISUAL DISTURBANCE [None]
